FAERS Safety Report 8991152 (Version 2)
Quarter: 2013Q1

REPORT INFORMATION
  Report Type: Spontaneous
  Country: US (occurrence: None)
  Receive Date: 20121219
  Receipt Date: 20121226
  Transmission Date: 20140127
  Serious: Yes (Hospitalization)
  Sender: FDA-Public Use
  Company Number: 2012SGN00568

PATIENT
  Age: 51 Year
  Sex: Male
  Weight: 74.8 kg

DRUGS (1)
  1. BRENTUXIMAB VEDOTIN [Suspect]
     Indication: ANGIOIMMUNOBLASTIC T-CELL LYMPHOMA
     Dosage: 1.8 MG/KG, Q21D, INTRAVENOUS
     Route: 042
     Dates: start: 20121105, end: 20121126

REACTIONS (5)
  - Hypercalcaemia [None]
  - Confusional state [None]
  - Dizziness [None]
  - Angioimmunoblastic T-cell lymphoma [None]
  - Malignant neoplasm progression [None]
